FAERS Safety Report 25613752 (Version 1)
Quarter: 2025Q3

REPORT INFORMATION
  Report Type: Spontaneous
  Country: EU (occurrence: EU)
  Receive Date: 20250728
  Receipt Date: 20250728
  Transmission Date: 20251020
  Serious: Yes (Other)
  Sender: MYLAN
  Company Number: EU-BRISTOL-MYERS SQUIBB COMPANY-2025-094685

PATIENT
  Age: 23 Year
  Sex: Female

DRUGS (32)
  1. FENOFIBRATE [Suspect]
     Active Substance: FENOFIBRATE
     Indication: Pinealoblastoma
     Dosage: 90 MILLIGRAM/SQ. METER, QD
  2. FENOFIBRATE [Suspect]
     Active Substance: FENOFIBRATE
     Dosage: 90 MILLIGRAM/SQ. METER, QD
     Route: 048
  3. FENOFIBRATE [Suspect]
     Active Substance: FENOFIBRATE
     Dosage: 90 MILLIGRAM/SQ. METER, QD
     Route: 048
  4. FENOFIBRATE [Suspect]
     Active Substance: FENOFIBRATE
     Dosage: 90 MILLIGRAM/SQ. METER, QD
  5. CELECOXIB [Suspect]
     Active Substance: CELECOXIB
     Indication: Pinealoblastoma
     Dosage: 800 MILLIGRAM, BID
  6. CELECOXIB [Suspect]
     Active Substance: CELECOXIB
     Dosage: 800 MILLIGRAM, BID
     Route: 048
  7. CELECOXIB [Suspect]
     Active Substance: CELECOXIB
     Dosage: 800 MILLIGRAM, BID
     Route: 048
  8. CELECOXIB [Suspect]
     Active Substance: CELECOXIB
     Dosage: 800 MILLIGRAM, BID
  9. ETOPOSIDE [Suspect]
     Active Substance: ETOPOSIDE
     Indication: Pinealoblastoma
  10. ETOPOSIDE [Suspect]
     Active Substance: ETOPOSIDE
  11. ETOPOSIDE [Suspect]
     Active Substance: ETOPOSIDE
     Route: 065
  12. ETOPOSIDE [Suspect]
     Active Substance: ETOPOSIDE
     Route: 065
  13. ETOPOSIDE [Suspect]
     Active Substance: ETOPOSIDE
     Dosage: (0.5 MG/DAY FOR 5 CONSECUTIVE DAYS)IN WEEK 1
  14. ETOPOSIDE [Suspect]
     Active Substance: ETOPOSIDE
     Dosage: (0.5 MG/DAY FOR 5 CONSECUTIVE DAYS)IN WEEK 1
  15. ETOPOSIDE [Suspect]
     Active Substance: ETOPOSIDE
     Dosage: (0.5 MG/DAY FOR 5 CONSECUTIVE DAYS)IN WEEK 1
     Route: 065
  16. ETOPOSIDE [Suspect]
     Active Substance: ETOPOSIDE
     Dosage: (0.5 MG/DAY FOR 5 CONSECUTIVE DAYS)IN WEEK 1
     Route: 065
  17. CYTARABINE [Suspect]
     Active Substance: CYTARABINE
     Indication: Pinealoblastoma
  18. CYTARABINE [Suspect]
     Active Substance: CYTARABINE
     Route: 042
  19. CYTARABINE [Suspect]
     Active Substance: CYTARABINE
     Route: 042
  20. CYTARABINE [Suspect]
     Active Substance: CYTARABINE
  21. THALIDOMIDE [Suspect]
     Active Substance: THALIDOMIDE
     Indication: Pinealoblastoma
     Dosage: 3 MILLIGRAM/KILOGRAM, QD
  22. THALIDOMIDE [Suspect]
     Active Substance: THALIDOMIDE
     Dosage: 3 MILLIGRAM/KILOGRAM, QD
     Route: 048
  23. THALIDOMIDE [Suspect]
     Active Substance: THALIDOMIDE
     Dosage: 3 MILLIGRAM/KILOGRAM, QD
     Route: 048
  24. THALIDOMIDE [Suspect]
     Active Substance: THALIDOMIDE
     Dosage: 3 MILLIGRAM/KILOGRAM, QD
  25. CYCLOPHOSPHAMIDE [Suspect]
     Active Substance: CYCLOPHOSPHAMIDE
     Indication: Pinealoblastoma
  26. CYCLOPHOSPHAMIDE [Suspect]
     Active Substance: CYCLOPHOSPHAMIDE
     Route: 065
  27. CYCLOPHOSPHAMIDE [Suspect]
     Active Substance: CYCLOPHOSPHAMIDE
     Route: 065
  28. CYCLOPHOSPHAMIDE [Suspect]
     Active Substance: CYCLOPHOSPHAMIDE
  29. BEVACIZUMAB [Suspect]
     Active Substance: BEVACIZUMAB
     Indication: Pinealoblastoma
     Dosage: 10 MILLIGRAM/KILOGRAM, Q2W
  30. BEVACIZUMAB [Suspect]
     Active Substance: BEVACIZUMAB
     Dosage: 10 MILLIGRAM/KILOGRAM, Q2W
     Route: 042
  31. BEVACIZUMAB [Suspect]
     Active Substance: BEVACIZUMAB
     Dosage: 10 MILLIGRAM/KILOGRAM, Q2W
     Route: 042
  32. BEVACIZUMAB [Suspect]
     Active Substance: BEVACIZUMAB
     Dosage: 10 MILLIGRAM/KILOGRAM, Q2W

REACTIONS (5)
  - Neutropenia [Unknown]
  - Neurotoxicity [Unknown]
  - Pneumocystis jirovecii pneumonia [Unknown]
  - Lymphopenia [Unknown]
  - Off label use [Unknown]
